FAERS Safety Report 5019147-4 (Version None)
Quarter: 2006Q2

REPORT INFORMATION
  Report Type: 
  Country: None (occurrence: None)
  Receive Date: 20060531
  Receipt Date: 20060526
  Transmission Date: 20061013
  Serious: Yes (Disabling)
  Sender: FDA-Public Use
  Company Number: HQWYE877005MAR03

PATIENT
  Age: 56 Year
  Sex: Male

DRUGS (3)
  1. DIMETAPP [Suspect]
     Dosage: ORAL
     Route: 048
     Dates: start: 19960101
  2. DIMETAPP [Suspect]
  3. ROBITUSSIN CF (DEXTROMETHORPHAN HYDROBROMIDE/GUAIFENESIN/PHENYLPROPANO [Suspect]
     Dosage: ORAL
     Route: 048

REACTIONS (1)
  - CEREBROVASCULAR ACCIDENT [None]
